FAERS Safety Report 19197353 (Version 1)
Quarter: 2021Q2

REPORT INFORMATION
  Report Type: Report from Study
  Country: CA (occurrence: CA)
  Receive Date: 20210430
  Receipt Date: 20210430
  Transmission Date: 20210717
  Serious: Yes (Hospitalization)
  Sender: FDA-Public Use
  Company Number: CA-JNJFOC-20210440904

PATIENT
  Age: 61 Year
  Sex: Male

DRUGS (2)
  1. CEFADROXIL. [Concomitant]
     Active Substance: CEFADROXIL
     Indication: PRODUCT USED FOR UNKNOWN INDICATION
     Dosage: 2 TABLETS
     Route: 065
  2. STELARA [Suspect]
     Active Substance: USTEKINUMAB
     Indication: COLITIS ULCERATIVE
     Route: 042
     Dates: start: 20210302

REACTIONS (9)
  - Headache [Unknown]
  - Diarrhoea [Unknown]
  - Oedema peripheral [Recovering/Resolving]
  - Erythema [Unknown]
  - Inflammation [Recovering/Resolving]
  - Constipation [Unknown]
  - Pain [Unknown]
  - Abdominal pain [Unknown]
  - Fatigue [Unknown]

NARRATIVE: CASE EVENT DATE: 2021
